FAERS Safety Report 6157538-9 (Version None)
Quarter: 2009Q2

REPORT INFORMATION
  Report Type: 
  Country: None (occurrence: None)
  Receive Date: 20090414
  Receipt Date: 20090401
  Transmission Date: 20091009
  Serious: Yes (Hospitalization)
  Sender: FDA-Public Use
  Company Number: SPV1-2009-00557

PATIENT
  Age: 71 Year
  Sex: Male
  Weight: 91.6 kg

DRUGS (9)
  1. FOSRENOL [Suspect]
     Indication: HYPERPHOSPHATAEMIA
     Dosage: 500 MG, 3X/DAY:TID
     Dates: start: 20081001
  2. PLAVIX [Concomitant]
  3. ATORVASTATIN CALCIUM [Concomitant]
  4. FINASTERIDE [Concomitant]
  5. OMEPRAZOLE [Concomitant]
  6. RENALVITE (ASCORBIC ACID, BIOTIN, CALCIUM PANTOTHENATE, CYANOCOBALAMIN [Concomitant]
  7. PERI-COLACE [Concomitant]
  8. FUROSEMIDE (FUROSEMIDE SODIUM) [Concomitant]
  9. ASPIRIN [Concomitant]

REACTIONS (3)
  - LEG AMPUTATION [None]
  - PHANTOM PAIN [None]
  - POSTOPERATIVE WOUND INFECTION [None]
